FAERS Safety Report 7415191-8 (Version None)
Quarter: 2011Q2

REPORT INFORMATION
  Report Type: 
  Country: None (occurrence: None)
  Receive Date: 20110414
  Receipt Date: 20110407
  Transmission Date: 20111010
  Serious: Yes (Other)
  Sender: FDA-Public Use
  Company Number: PHHY2010FR35993

PATIENT
  Age: 42 Year
  Sex: Female

DRUGS (2)
  1. EXTAVIA [Suspect]
     Dosage: 1 MG/ML, QOD
     Dates: start: 20100423
  2. ACETAMINOPHEN [Concomitant]
     Dosage: OCCASIONALLY

REACTIONS (7)
  - INJECTION SITE PAIN [None]
  - INJECTION SITE HAEMATOMA [None]
  - INJECTION SITE ERYTHEMA [None]
  - INJECTION SITE MASS [None]
  - INJECTION SITE SWELLING [None]
  - APHONIA [None]
  - PYREXIA [None]
